FAERS Safety Report 8006220-1 (Version None)
Quarter: 2011Q4

REPORT INFORMATION
  Report Type: 
  Country: None (occurrence: None)
  Receive Date: 20111226
  Receipt Date: 20111212
  Transmission Date: 20120403
  Serious: Yes (Hospitalization, Other)
  Sender: FDA-Public Use
  Company Number: US-ELI_LILLY_AND_COMPANY-US201110006568

PATIENT
  Sex: Female
  Weight: 51.247 kg

DRUGS (2)
  1. FORTEO [Suspect]
     Indication: OSTEOPOROSIS POSTMENOPAUSAL
     Dosage: 20 UG, QD
     Route: 065
  2. FORTEO [Suspect]
     Dosage: 20 UG, QD
     Route: 065

REACTIONS (7)
  - CHRONIC OBSTRUCTIVE PULMONARY DISEASE [None]
  - HIP FRACTURE [None]
  - IMMUNOSUPPRESSION [None]
  - UPPER RESPIRATORY TRACT INFECTION [None]
  - DIARRHOEA [None]
  - PNEUMONIA [None]
  - VOMITING [None]
